FAERS Safety Report 8610872-2 (Version None)
Quarter: 2012Q3

REPORT INFORMATION
  Report Type: 
  Country: None (occurrence: None)
  Receive Date: 20120822
  Receipt Date: 20120814
  Transmission Date: 20120928
  Serious: Yes (Hospitalization)
  Sender: FDA-Public Use
  Company Number: BE-JNJFOC-20111210321

PATIENT
  Sex: Female
  Weight: 43 kg

DRUGS (3)
  1. MESALAMINE [Concomitant]
     Indication: CROHN'S DISEASE
     Route: 054
  2. REMICADE [Suspect]
     Indication: CROHN'S DISEASE
     Route: 042
     Dates: start: 20110412
  3. AZATHIOPRINE SODIUM [Suspect]
     Indication: CROHN'S DISEASE

REACTIONS (1)
  - STAPHYLOCOCCAL ABSCESS [None]
